FAERS Safety Report 21303319 (Version 1)
Quarter: 2022Q3

REPORT INFORMATION
  Report Type: Spontaneous
  Country: US (occurrence: None)
  Receive Date: 20220907
  Receipt Date: 20220907
  Transmission Date: 20221027
  Serious: Yes (Other)
  Sender: FDA-Public Use
  Company Number: None

PATIENT
  Age: 32 Year
  Sex: Female
  Weight: 68 kg

DRUGS (1)
  1. FERRLECIT [Suspect]
     Active Substance: SODIUM FERRIC GLUCONATE COMPLEX
     Indication: Anaemia
     Dosage: FREQUENCY : DAILY;?
     Route: 042
     Dates: start: 20220818, end: 20220818

REACTIONS (5)
  - Pruritus [None]
  - Flushing [None]
  - Tachycardia [None]
  - Pharyngeal swelling [None]
  - Lip swelling [None]

NARRATIVE: CASE EVENT DATE: 20220818
